FAERS Safety Report 8219084-8 (Version None)
Quarter: 2012Q1

REPORT INFORMATION
  Report Type: 
  Country: None (occurrence: None)
  Receive Date: 20120319
  Receipt Date: 20120308
  Transmission Date: 20120608
  Serious: Yes (Death, Other)
  Sender: FDA-Public Use
  Company Number: FR-JNJFOC-20120306263

PATIENT
  Age: 70 Year
  Sex: Female

DRUGS (5)
  1. HEPARIN [Concomitant]
     Dates: start: 20120201
  2. XARELTO [Suspect]
     Indication: KNEE ARTHROPLASTY
     Route: 048
     Dates: start: 20120229, end: 20120301
  3. XARELTO [Suspect]
     Indication: HIP ARTHROPLASTY
     Route: 048
     Dates: start: 20120229, end: 20120301
  4. NEXIUM [Concomitant]
  5. RABEPRAZOLE SODIUM [Concomitant]

REACTIONS (2)
  - GASTROINTESTINAL HAEMORRHAGE [None]
  - INTESTINAL INFARCTION [None]
